FAERS Safety Report 19997721 (Version 1)
Quarter: 2021Q4

REPORT INFORMATION
  Report Type: Report from Study
  Country: GR (occurrence: GR)
  Receive Date: 20211026
  Receipt Date: 20211026
  Transmission Date: 20220303
  Serious: Yes (Other)
  Sender: FDA-Public Use
  Company Number: GR-NOVARTISPH-NVSC2021GR241495

PATIENT
  Age: 8 Year
  Sex: Female

DRUGS (1)
  1. OMNITROPE [Suspect]
     Active Substance: SOMATROPIN
     Indication: Growth hormone deficiency
     Dosage: 3.5 MG, QD
     Route: 058
     Dates: start: 202104

REACTIONS (5)
  - Infusion site oedema [Unknown]
  - Infusion site swelling [Unknown]
  - Infusion site haemorrhage [Unknown]
  - Infusion site bruising [Unknown]
  - Off label use [Unknown]

NARRATIVE: CASE EVENT DATE: 20211019
